FAERS Safety Report 4356790-X (Version None)
Quarter: 2004Q2

REPORT INFORMATION
  Report Type: 
  Country: None (occurrence: None)
  Receive Date: 20040507
  Receipt Date: 20040429
  Transmission Date: 20050107
  Serious: Yes (Hospitalization)
  Sender: FDA-Public Use
  Company Number: 200412196BCC

PATIENT
  Sex: Male

DRUGS (2)
  1. ALEVE [Suspect]
     Dosage: 2200 MG, ONCE, ORAL
     Route: 048
     Dates: start: 20040318
  2. EFFEXOR [Suspect]
     Dosage: 375 MG, ONCE, ORAL
     Route: 048
     Dates: start: 20040318

REACTIONS (3)
  - MULTIPLE DRUG OVERDOSE [None]
  - MUSCLE CRAMP [None]
  - TACHYPNOEA [None]
